FAERS Safety Report 6961205-9 (Version None)
Quarter: 2010Q3

REPORT INFORMATION
  Report Type: 
  Country: None (occurrence: None)
  Receive Date: 20100823
  Receipt Date: 20100607
  Transmission Date: 20110219
  Serious: No
  Sender: FDA-Public Use
  Company Number: 007840

PATIENT
  Sex: Female
  Weight: 76.2 kg

DRUGS (5)
  1. CIMZIA [Suspect]
     Indication: CROHN'S DISEASE
     Dosage: (400 MG 1X/MONTH SUBCUTANEOUS)
     Route: 058
     Dates: start: 20091101
  2. OXYCODONE HCL AND ACETAMINOPHEN [Concomitant]
  3. PERCOCET [Concomitant]
  4. LOMOTIL /00034001/ [Concomitant]
  5. LIDOCAINE [Concomitant]

REACTIONS (17)
  - APHTHOUS STOMATITIS [None]
  - ARTHRALGIA [None]
  - BONE PAIN [None]
  - DIZZINESS [None]
  - FATIGUE [None]
  - HEADACHE [None]
  - MEMORY IMPAIRMENT [None]
  - METRORRHAGIA [None]
  - NAUSEA [None]
  - OEDEMA PERIPHERAL [None]
  - PAIN [None]
  - PARAESTHESIA [None]
  - PYREXIA [None]
  - RASH [None]
  - SKIN DISCOLOURATION [None]
  - VAGINAL HAEMORRHAGE [None]
  - VISION BLURRED [None]
